FAERS Safety Report 4572176-7 (Version None)
Quarter: 2005Q1

REPORT INFORMATION
  Report Type: 
  Country: None (occurrence: None)
  Receive Date: 20050202
  Receipt Date: 20050114
  Transmission Date: 20050727
  Serious: Yes (Other)
  Sender: FDA-Public Use
  Company Number: USA050188428

PATIENT
  Age: 82 Year
  Sex: Female

DRUGS (3)
  1. PROZAC [Suspect]
     Indication: ANXIETY
     Dosage: 20 MG DAY
     Route: 048
     Dates: start: 19900101
  2. COUMADIN [Concomitant]
  3. MULTIVITAMIN [Concomitant]

REACTIONS (7)
  - CONDITION AGGRAVATED [None]
  - FALL [None]
  - HIP FRACTURE [None]
  - OSTEOPOROSIS [None]
  - TREATMENT NONCOMPLIANCE [None]
  - WALKING AID USER [None]
  - WHEELCHAIR USER [None]
